FAERS Safety Report 14372696 (Version 12)
Quarter: 2018Q3

REPORT INFORMATION
  Report Type: Report from Study
  Country: BE (occurrence: BE)
  Receive Date: 20180110
  Receipt Date: 20180711
  Transmission Date: 20181010
  Serious: Yes (Death, Hospitalization)
  Sender: FDA-Public Use
  Company Number: BE-PFIZER INC-2018008301

PATIENT
  Age: 66 Year
  Sex: Male
  Weight: 85 kg

DRUGS (6)
  1. DAFALGAN [Concomitant]
     Active Substance: ACETAMINOPHEN
     Indication: PROPHYLAXIS
  2. FLUOROURACIL. [Suspect]
     Active Substance: FLUOROURACIL
     Indication: COLORECTAL CANCER METASTATIC
     Dosage: UNK, CYCLIC (EVERY 2 WEEKS)
     Route: 042
     Dates: start: 20170717
  3. IRINOTECAN HCL [Suspect]
     Active Substance: IRINOTECAN HYDROCHLORIDE
     Indication: COLORECTAL CANCER METASTATIC
     Dosage: UNK, CYCLIC (EVERY 2 WEEKS)
     Route: 042
     Dates: start: 20170717
  4. LEUCOVORIN /00566701/ [Suspect]
     Active Substance: LEUCOVORIN
     Indication: COLORECTAL CANCER METASTATIC
     Dosage: UNK, CYCLIC (EVERY 2 WEEKS)
     Route: 042
     Dates: start: 20170717
  5. ZEFFIX [Concomitant]
     Active Substance: LAMIVUDINE
     Dosage: UNK
     Dates: start: 20170802
  6. AVASTIN [Suspect]
     Active Substance: BEVACIZUMAB
     Indication: COLORECTAL CANCER METASTATIC
     Dosage: UNK, CYCLIC (EVERY 2 WEEKS)
     Route: 042
     Dates: start: 20170717

REACTIONS (4)
  - Abdominal pain upper [Fatal]
  - Constipation [Fatal]
  - Musculoskeletal pain [Fatal]
  - Pain in extremity [Fatal]

NARRATIVE: CASE EVENT DATE: 20170810
